FAERS Safety Report 9431970 (Version 2)
Quarter: 2013Q3

REPORT INFORMATION
  Report Type: Report from Study
  Country: US (occurrence: US)
  Receive Date: 20130731
  Receipt Date: 20130816
  Transmission Date: 20140515
  Serious: Yes (Hospitalization, Other)
  Sender: FDA-Public Use
  Company Number: US-BRISTOL-MYERS SQUIBB COMPANY-19105550

PATIENT
  Age: 58 Year
  Sex: Female
  Weight: 47.4 kg

DRUGS (1)
  1. IPILIMUMAB [Suspect]
     Indication: MALIGNANT MELANOMA
     Dosage: LAST DOSE:13JUN2013 490MG.?IND 1:494MG ON 11APR13,IND 2:480MG ON 2MAY13,IND 3:496MG ON 23MAY13.
     Route: 042
     Dates: start: 20130411

REACTIONS (3)
  - Rash maculo-papular [Recovering/Resolving]
  - Colitis [Recovering/Resolving]
  - Hypokalaemia [Recovered/Resolved]
